FAERS Safety Report 5488934-0 (Version None)
Quarter: 2007Q4

REPORT INFORMATION
  Report Type: 
  Country: None (occurrence: None)
  Receive Date: 20071016
  Receipt Date: 20070928
  Transmission Date: 20080405
  Serious: Yes (Hospitalization)
  Sender: FDA-Public Use
  Company Number: DSA_30697_2007

PATIENT
  Sex: Male

DRUGS (8)
  1. LORAZEPAM [Suspect]
     Indication: DRUG USE FOR UNKNOWN INDICATION
     Dosage: (2.5 MG 1X ORAL)
     Route: 048
     Dates: start: 20070402, end: 20070402
  2. CLOPIXOL ACUTARD (CLOPIXOL ACUTARD ZUCLOPENTHIXOL ACETATE) (NOT SPECIF [Suspect]
     Indication: DRUG USE FOR UNKNOWN INDICATION
     Dosage: (75 MG 1X INTRAMUSCULAR)
     Route: 030
     Dates: start: 20070401, end: 20070401
  3. DIAZEPAM [Suspect]
     Indication: DRUG USE FOR UNKNOWN INDICATION
     Dosage: (10 MG 1X INTRAMUSCULAR)
     Route: 030
     Dates: start: 20070401, end: 20070401
  4. DEPAKENE [Suspect]
     Indication: DRUG USE FOR UNKNOWN INDICATION
     Dosage: (800 MG QD ORAL), (1600 MG QD ORAL), (1000 MG QD ORAL)
     Route: 048
     Dates: start: 20070402, end: 20070402
  5. DEPAKENE [Suspect]
     Indication: DRUG USE FOR UNKNOWN INDICATION
     Dosage: (800 MG QD ORAL), (1600 MG QD ORAL), (1000 MG QD ORAL)
     Route: 048
     Dates: start: 20070403, end: 20070404
  6. DEPAKENE [Suspect]
     Indication: DRUG USE FOR UNKNOWN INDICATION
     Dosage: (800 MG QD ORAL), (1600 MG QD ORAL), (1000 MG QD ORAL)
     Route: 048
     Dates: start: 20070405
  7. ZYPREXA [Suspect]
     Indication: DRUG USE FOR UNKNOWN INDICATION
     Dosage: (10 MG QD ORAL), (15 MG QD ORAL)
     Route: 048
     Dates: start: 20070402, end: 20070402
  8. ZYPREXA [Suspect]
     Indication: DRUG USE FOR UNKNOWN INDICATION
     Dosage: (10 MG QD ORAL), (15 MG QD ORAL)
     Route: 048
     Dates: start: 20070404

REACTIONS (3)
  - DRUG INTERACTION [None]
  - RESPIRATORY DEPRESSION [None]
  - SOPOR [None]
